FAERS Safety Report 17654921 (Version 1)
Quarter: 2020Q2

REPORT INFORMATION
  Report Type: Spontaneous
  Country: US (occurrence: US)
  Receive Date: 20200409
  Receipt Date: 20200409
  Transmission Date: 20200713
  Serious: No
  Sender: FDA-Public Use
  Company Number: None

PATIENT
  Age: 65 Year
  Sex: Female

DRUGS (1)
  1. VOTRIENT [Suspect]
     Active Substance: PAZOPANIB HYDROCHLORIDE
     Route: 048
     Dates: start: 2020

REACTIONS (4)
  - Nausea [None]
  - Burning sensation [None]
  - Inflammation [None]
  - Vomiting [None]

NARRATIVE: CASE EVENT DATE: 20200409
